FAERS Safety Report 6754277-8 (Version None)
Quarter: 2010Q2

REPORT INFORMATION
  Report Type: 
  Country: None (occurrence: None)
  Receive Date: 20100603
  Receipt Date: 20100525
  Transmission Date: 20101027
  Serious: Yes (Other)
  Sender: FDA-Public Use
  Company Number: US-MERCK-1005USA04292

PATIENT
  Age: 55 Year
  Sex: Female
  Weight: 45 kg

DRUGS (4)
  1. FOSAMAX [Suspect]
     Route: 048
     Dates: end: 20100101
  2. BENADRYL [Suspect]
     Indication: HYPERSENSITIVITY
     Route: 048
     Dates: start: 20030101
  3. ANALGESIUM [Concomitant]
     Route: 065
  4. LOPRESSOR [Concomitant]
     Indication: CARDIAC DISORDER
     Route: 065

REACTIONS (2)
  - ANKLE FRACTURE [None]
  - IMPAIRED HEALING [None]
